FAERS Safety Report 8963155 (Version 1)
Quarter: 2012Q4

REPORT INFORMATION
  Report Type: 
  Country: EC (occurrence: EC)
  Receive Date: 20121213
  Receipt Date: 20121213
  Transmission Date: 20130627
  Serious: Yes (Hospitalization, Other)
  Sender: FDA-Public Use
  Company Number: PHHY2011EC84698

PATIENT
  Sex: Male

DRUGS (4)
  1. TEGRETOL CR [Suspect]
     Indication: EPILEPSY
     Dosage: 400 mg,TID
     Route: 048
     Dates: start: 1999
  2. AMLOR [Concomitant]
     Indication: HYPERTENSION
     Dosage: 5 mg, Daily
     Dates: start: 2010
  3. SEROQUEL [Concomitant]
     Dosage: 200 mg, Daily
  4. RIVOTRIL [Concomitant]

REACTIONS (9)
  - Pancreatitis [Unknown]
  - Convulsion [Unknown]
  - Renal pain [Unknown]
  - Gastritis [Unknown]
  - Tremor [Unknown]
  - Liver disorder [Unknown]
  - Abdominal pain upper [Unknown]
  - Anxiety [Unknown]
  - Hypertension [Unknown]
